FAERS Safety Report 7020793-7 (Version None)
Quarter: 2010Q3

REPORT INFORMATION
  Report Type: 
  Country: None (occurrence: None)
  Receive Date: 20100929
  Receipt Date: 20100921
  Transmission Date: 20110219
  Serious: Yes (Hospitalization)
  Sender: FDA-Public Use
  Company Number: FR-PFIZER INC-2010119938

PATIENT
  Age: 74 Year
  Sex: Male

DRUGS (1)
  1. TAHOR [Suspect]
     Dosage: 10 MG, UNK

REACTIONS (3)
  - BALANCE DISORDER [None]
  - CONFUSIONAL STATE [None]
  - MUSCULAR WEAKNESS [None]
